FAERS Safety Report 4353264-7 (Version None)
Quarter: 2004Q2

REPORT INFORMATION
  Report Type: 
  Country: None (occurrence: None)
  Receive Date: 20040430
  Receipt Date: 20040420
  Transmission Date: 20050107
  Serious: Yes (Hospitalization, Other)
  Sender: FDA-Public Use
  Company Number: 2004024155

PATIENT
  Sex: Male
  Weight: 68.0396 kg

DRUGS (6)
  1. DILANTIN KAPSEAL [Suspect]
     Indication: CONVULSION
     Dosage: ORAL
     Route: 048
     Dates: start: 19980101
  2. VALPROATE SODIUM [Suspect]
     Indication: ILL-DEFINED DISORDER
     Dosage: 1500 MG (DAILY), INTRAVENOUS
     Route: 042
     Dates: start: 20040301
  3. PHENYTOIN [Suspect]
     Indication: ILL-DEFINED DISORDER
     Dosage: NASOGASTRIC TUBE
     Dates: start: 20040101
  4. LEVOTHYROXINE SODIUM [Concomitant]
  5. PRAVASTATIN SODIUM [Concomitant]
  6. ACETYLSALICYLIC ACID SRT [Concomitant]

REACTIONS (17)
  - ASTHENIA [None]
  - CEREBRAL VENTRICLE DILATATION [None]
  - CONVULSION [None]
  - DEPRESSED LEVEL OF CONSCIOUSNESS [None]
  - DRUG INEFFECTIVE [None]
  - DRUG LEVEL FLUCTUATING [None]
  - DRUG TOLERANCE INCREASED [None]
  - HYPERTENSION [None]
  - HYPOAESTHESIA [None]
  - MEDICATION ERROR [None]
  - OBSTRUCTIVE AIRWAYS DISORDER [None]
  - OROPHARYNGEAL SWELLING [None]
  - SEDATION [None]
  - SOMNOLENCE [None]
  - STRIDOR [None]
  - TRANSIENT ISCHAEMIC ATTACK [None]
  - VOMITING [None]
